FAERS Safety Report 10190323 (Version 2)
Quarter: 2014Q2

REPORT INFORMATION
  Report Type: Spontaneous
  Country: US (occurrence: US)
  Receive Date: 20140522
  Receipt Date: 20140523
  Transmission Date: 20141212
  Serious: No
  Sender: FDA-Public Use
  Company Number: US-ASTRAZENECA-2014SE12545

PATIENT
  Age: 57 Year
  Sex: Female
  Weight: 72.6 kg

DRUGS (2)
  1. PULMICORT FLEXHALER [Suspect]
     Indication: ASTHMA
     Dosage: 180 MCG, 2 PUFFS TWICE DAILY, FOR APPROXIMATELY 3 YEARS
     Route: 055
  2. LEVABUTEROL [Concomitant]
     Indication: RESPIRATORY DISORDER
     Route: 055

REACTIONS (4)
  - Bronchitis [Unknown]
  - Cough [Unknown]
  - Drug ineffective [Unknown]
  - Drug administration error [Unknown]
